FAERS Safety Report 16278224 (Version 1)
Quarter: 2019Q2

REPORT INFORMATION
  Report Type: Spontaneous
  Country: US (occurrence: US)
  Receive Date: 20190506
  Receipt Date: 20190506
  Transmission Date: 20190711
  Serious: Yes (Death, Other)
  Sender: FDA-Public Use
  Company Number: US-ASTRAZENECA-2019SE11543

PATIENT
  Sex: Male

DRUGS (7)
  1. ALLOPURINOL. [Concomitant]
     Active Substance: ALLOPURINOL
  2. AMITRIPTYLINE [Concomitant]
     Active Substance: AMITRIPTYLINE
  3. CARISOPRODOL. [Concomitant]
     Active Substance: CARISOPRODOL
  4. DEXILANT [Suspect]
     Active Substance: DEXLANSOPRAZOLE
     Route: 065
  5. LYRICA [Concomitant]
     Active Substance: PREGABALIN
  6. NEXIUM [Suspect]
     Active Substance: ESOMEPRAZOLE MAGNESIUM
     Route: 048
  7. CERON [Concomitant]
     Active Substance: CHLORPHENIRAMINE MALEATE\PHENYLEPHRINE HYDROCHLORIDE

REACTIONS (4)
  - Death [Fatal]
  - Rebound acid hypersecretion [Unknown]
  - Renal failure [Unknown]
  - Chronic kidney disease [Unknown]
